FAERS Safety Report 16877036 (Version 1)
Quarter: 2019Q4

REPORT INFORMATION
  Report Type: Spontaneous
  Country: SE (occurrence: SE)
  Receive Date: 20191002
  Receipt Date: 20191002
  Transmission Date: 20200122
  Serious: Yes (Hospitalization)
  Sender: FDA-Public Use
  Company Number: SE-PFIZER INC-2019418512

PATIENT
  Age: 79 Year
  Sex: Female

DRUGS (7)
  1. CEFTAZIDIM SANDOZ [Suspect]
     Active Substance: CEFTAZIDIME
     Indication: LIVER ABSCESS
     Dosage: 6 G, 1X/DAY (2.0 G 2G X3 (16-25/8), 500 MG X1 (26-28/8))
     Route: 042
     Dates: start: 20190816, end: 20190825
  2. LINEZOLID. [Concomitant]
     Active Substance: LINEZOLID
     Dosage: 1200 MG, 1X/DAY
     Route: 042
  3. CEFTAZIDIM SANDOZ [Suspect]
     Active Substance: CEFTAZIDIME
     Dosage: 500 MG, 1X/DAY
     Dates: start: 20190826, end: 20190828
  4. CANCIDAS [Suspect]
     Active Substance: CASPOFUNGIN ACETATE
     Dosage: 50 UNK, (70 MG (19/8), 50 (20/8))
     Dates: start: 20190820, end: 20190820
  5. CANCIDAS [Suspect]
     Active Substance: CASPOFUNGIN ACETATE
     Indication: LIVER ABSCESS
     Dosage: 70 MG, UNK (70 MG (19/8), 50 (20/8))
     Route: 042
     Dates: start: 20190819, end: 20190819
  6. DIFLUCAN [Suspect]
     Active Substance: FLUCONAZOLE
     Indication: LIVER ABSCESS
     Dosage: 400 MG, 1X/DAY (200.0 MG 2X1 (22-26/8) 1X1 (27-28/8))
     Route: 048
     Dates: start: 20190822, end: 20190826
  7. DIFLUCAN [Suspect]
     Active Substance: FLUCONAZOLE
     Dosage: 200 MG, 1X/DAY
     Dates: start: 20190827, end: 20190828

REACTIONS (3)
  - Acute kidney injury [Recovering/Resolving]
  - Product use in unapproved indication [Unknown]
  - Off label use [Unknown]

NARRATIVE: CASE EVENT DATE: 20190822
